FAERS Safety Report 6039695-8 (Version None)
Quarter: 2009Q1

REPORT INFORMATION
  Report Type: 
  Country: None (occurrence: None)
  Receive Date: 20090116
  Receipt Date: 20080916
  Transmission Date: 20090719
  Serious: No
  Sender: FDA-Public Use
  Company Number: US-KINGPHARMUSA00001-K200801084

PATIENT
  Age: 67 Year
  Sex: Female
  Weight: 54.422 kg

DRUGS (7)
  1. CORGARD [Suspect]
     Indication: HYPERTENSION
     Dosage: 80 MG, QD
     Route: 048
     Dates: start: 19830101
  2. PRILOSEC [Concomitant]
     Dosage: 200 MG, QD
  3. SYNTHROID [Concomitant]
     Dosage: .075 MG, QD
  4. PROBENECID [Concomitant]
     Indication: GOUT
     Dosage: 500 MG, QD
  5. DYAZIDE [Concomitant]
     Indication: HYPERTENSION
  6. VITAMINS                           /90003601/ [Concomitant]
  7. ESTROGENIC SUBSTANCE [Concomitant]
     Dosage: UNK, UNK
     Dates: end: 20070101

REACTIONS (3)
  - BLOOD OESTROGEN INCREASED [None]
  - CHEST PAIN [None]
  - HEADACHE [None]
